FAERS Safety Report 6125828-1 (Version None)
Quarter: 2009Q1

REPORT INFORMATION
  Report Type: 
  Country: None (occurrence: None)
  Receive Date: 20090318
  Receipt Date: 20090303
  Transmission Date: 20090719
  Serious: Yes (Other)
  Sender: FDA-Public Use
  Company Number: 2009S1003714

PATIENT
  Sex: Female
  Weight: 11 kg

DRUGS (3)
  1. AMLODIPINE [Suspect]
     Indication: HYPERTENSION
     Dates: start: 20060522, end: 20061005
  2. CYCLOPHOSPHAMIDE (PREV.) [Concomitant]
  3. DEXTROSE (CON.) [Concomitant]

REACTIONS (3)
  - EJECTION FRACTION DECREASED [None]
  - MITRAL VALVE INCOMPETENCE [None]
  - PERICARDIAL EFFUSION [None]
